FAERS Safety Report 20372722 (Version 1)
Quarter: 2022Q1

REPORT INFORMATION
  Report Type: Report from Study
  Country: IT (occurrence: IT)
  Receive Date: 20220125
  Receipt Date: 20220125
  Transmission Date: 20220423
  Serious: Yes (Death, Other)
  Sender: FDA-Public Use
  Company Number: IT-TAKEDA-2022TUS003419

PATIENT
  Age: 64 Year
  Sex: Male

DRUGS (1)
  1. HUMAN IMMUNOGLOBULIN G\HYALURONIDASE RECOMBINANT HUMAN [Suspect]
     Active Substance: HUMAN IMMUNOGLOBULIN G\HYALURONIDASE RECOMBINANT HUMAN
     Indication: Secondary immunodeficiency
     Dosage: 35 GRAM, MONTHLY
     Route: 058
     Dates: start: 20210816, end: 20211213

REACTIONS (2)
  - Multiple organ dysfunction syndrome [Fatal]
  - Bone marrow transplant rejection [Fatal]

NARRATIVE: CASE EVENT DATE: 20211201
